FAERS Safety Report 4959001-7 (Version None)
Quarter: 2006Q1

REPORT INFORMATION
  Report Type: 
  Country: None (occurrence: None)
  Receive Date: 20060324
  Receipt Date: 20060313
  Transmission Date: 20060701
  Serious: Yes (Death, Hospitalization)
  Sender: FDA-Public Use
  Company Number: US-2005-020304

PATIENT
  Age: 38 Year
  Sex: Female
  Weight: 113 kg

DRUGS (1)
  1. BETASERON [Suspect]
     Indication: MULTIPLE SCLEROSIS
     Dosage: SUBCUTANEOUS
     Route: 058
     Dates: start: 19950404

REACTIONS (4)
  - ASPIRATION [None]
  - GASTRIC DISORDER [None]
  - PNEUMONIA ASPIRATION [None]
  - RESPIRATORY FAILURE [None]
